FAERS Safety Report 6333611-7 (Version None)
Quarter: 2009Q3

REPORT INFORMATION
  Report Type: 
  Country: None (occurrence: None)
  Receive Date: 20090829
  Receipt Date: 20090724
  Transmission Date: 20100115
  Serious: No
  Sender: FDA-Public Use
  Company Number: US-ABBOTT-09P-163-0567154-00

PATIENT
  Sex: Male

DRUGS (3)
  1. SIMCOR [Suspect]
     Indication: DRUG USE FOR UNKNOWN INDICATION
     Dosage: 500/20
     Dates: start: 20090301
  2. M.V.I. [Concomitant]
     Indication: DRUG USE FOR UNKNOWN INDICATION
  3. ASPIRIN [Concomitant]
     Indication: DRUG USE FOR UNKNOWN INDICATION

REACTIONS (7)
  - ABDOMINAL DISCOMFORT [None]
  - ARTHRALGIA [None]
  - BLOOD PRESSURE DECREASED [None]
  - CONFUSIONAL STATE [None]
  - DIZZINESS [None]
  - FEELING ABNORMAL [None]
  - MYALGIA [None]
